FAERS Safety Report 10676863 (Version 7)
Quarter: 2016Q1

REPORT INFORMATION
  Report Type: Report from Study
  Country: US (occurrence: US)
  Receive Date: 20141226
  Receipt Date: 20160129
  Transmission Date: 20160525
  Serious: Yes (Death, Hospitalization, Other)
  Sender: FDA-Public Use
  Company Number: US-SA-2014SA176253

PATIENT
  Age: 8 Year
  Sex: Female
  Weight: 17.5 kg

DRUGS (6)
  1. LUMIZYME [Suspect]
     Active Substance: ALGLUCOSIDASE ALFA
     Indication: GLYCOGEN STORAGE DISEASE TYPE II
     Route: 041
     Dates: start: 20141112, end: 20150702
  2. CLOTRIMAZOLE. [Concomitant]
     Active Substance: CLOTRIMAZOLE
  3. ALBUTEROL. [Concomitant]
     Active Substance: ALBUTEROL
  4. LUMIZYME [Suspect]
     Active Substance: ALGLUCOSIDASE ALFA
     Indication: GLYCOGEN STORAGE DISEASE TYPE II
     Route: 041
  5. ATIVAN [Concomitant]
     Active Substance: LORAZEPAM
  6. CALCIUM CARBONATE. [Concomitant]
     Active Substance: CALCIUM CARBONATE

REACTIONS (20)
  - Device occlusion [Unknown]
  - Neutrophilia [Recovered/Resolved]
  - Cardio-respiratory arrest [Unknown]
  - Cyanosis [Unknown]
  - Bronchial secretion retention [Recovered/Resolved]
  - Product contamination physical [Unknown]
  - Death [Fatal]
  - White blood cell count increased [Recovered/Resolved]
  - Vomiting [Unknown]
  - Bronchitis [Recovered/Resolved]
  - Syncope [Unknown]
  - Respiratory tract infection [Unknown]
  - Bronchiectasis [Recovered/Resolved]
  - Coma [Unknown]
  - Abdominal pain [Unknown]
  - Pyrexia [Unknown]
  - Candida infection [Recovered/Resolved]
  - Dysmyelination [Unknown]
  - Hypoxic-ischaemic encephalopathy [Unknown]
  - Haemophilus infection [Recovered/Resolved]

NARRATIVE: CASE EVENT DATE: 20141216
